FAERS Safety Report 8614842-X (Version None)
Quarter: 2012Q3

REPORT INFORMATION
  Report Type: 
  Country: None (occurrence: None)
  Receive Date: 20120823
  Receipt Date: 20120815
  Transmission Date: 20120928
  Serious: Yes (Other)
  Sender: FDA-Public Use
  Company Number: US-PFIZER INC-2012197591

PATIENT
  Age: 55 Year
  Sex: Female
  Weight: 62 kg

DRUGS (7)
  1. ONDANSETRON [Concomitant]
     Dosage: UNK
  2. WARFARIN [Concomitant]
     Dosage: UNK
  3. SUTENT [Suspect]
     Indication: LUNG NEOPLASM MALIGNANT
     Dosage: 50 MG, 1X/DAY
     Route: 048
     Dates: start: 20120101, end: 20120101
  4. SUTENT [Suspect]
     Indication: METASTATIC RENAL CELL CARCINOMA
     Dosage: 50 MG, 1X/DAY
     Route: 048
     Dates: start: 20120801, end: 20120815
  5. AMLODIPINE [Concomitant]
     Indication: HYPERTENSION
     Dosage: 5 MG, UNK
  6. COUMADIN [Concomitant]
     Dosage: UNK
  7. VICODIN [Concomitant]
     Dosage: UNK

REACTIONS (17)
  - FATIGUE [None]
  - HAEMATURIA [None]
  - YELLOW SKIN [None]
  - CONSTIPATION [None]
  - VOMITING [None]
  - RECTAL HAEMORRHAGE [None]
  - ANAL HAEMORRHAGE [None]
  - HAEMOPTYSIS [None]
  - DIARRHOEA [None]
  - WEIGHT DECREASED [None]
  - BLOOD PRESSURE INCREASED [None]
  - ASTHENIA [None]
  - DECREASED APPETITE [None]
  - BLOOD URINE PRESENT [None]
  - HAEMATOCHEZIA [None]
  - COUGH [None]
  - HYPERSOMNIA [None]
